FAERS Safety Report 6011228-1 (Version None)
Quarter: 2008Q4

REPORT INFORMATION
  Report Type: 
  Country: None (occurrence: None)
  Receive Date: 20081218
  Receipt Date: 20081210
  Transmission Date: 20090506
  Serious: Yes (Life-Threatening, Hospitalization)
  Sender: FDA-Public Use
  Company Number: JP-MERCK-0812USA02829

PATIENT
  Age: 67 Year
  Sex: Female

DRUGS (6)
  1. PEPCID RPD [Suspect]
     Route: 048
     Dates: start: 20081001
  2. PROGRAF [Suspect]
     Route: 048
     Dates: start: 20081121, end: 20081204
  3. AZULFIDINE EN-TABS [Concomitant]
     Route: 048
     Dates: start: 20081001
  4. PREDONINE [Concomitant]
     Route: 048
     Dates: start: 20081001
  5. FOSAMAX [Concomitant]
     Route: 048
     Dates: start: 20081001
  6. COTRIM [Concomitant]
     Route: 048
     Dates: start: 20081001

REACTIONS (2)
  - AGRANULOCYTOSIS [None]
  - SEPSIS [None]
